FAERS Safety Report 9693154 (Version 3)
Quarter: 2014Q3

REPORT INFORMATION
  Report Type: Spontaneous
  Country: US (occurrence: US)
  Receive Date: 20131118
  Receipt Date: 20140824
  Transmission Date: 20150326
  Serious: Yes (Hospitalization, Other)
  Sender: FDA-Public Use
  Company Number: US-009507513-1311USA005898

PATIENT
  Sex: Female
  Weight: 64.4 kg

DRUGS (1)
  1. NUVARING [Suspect]
     Active Substance: ETHINYL ESTRADIOL\ETONOGESTREL
     Indication: CONTRACEPTION
     Dosage: UNK
     Route: 067
     Dates: start: 201108, end: 201209

REACTIONS (7)
  - Thrombolysis [Unknown]
  - Stent placement [Unknown]
  - Deep vein thrombosis [Unknown]
  - Rotator cuff repair [Unknown]
  - Angioplasty [Unknown]
  - Urinary tract infection [Unknown]
  - Vena cava filter insertion [Unknown]

NARRATIVE: CASE EVENT DATE: 20120615
